FAERS Safety Report 6913189-7 (Version None)
Quarter: 2010Q3

REPORT INFORMATION
  Report Type: 
  Country: None (occurrence: None)
  Receive Date: 20100808
  Receipt Date: 20100713
  Transmission Date: 20110219
  Serious: Yes (Other)
  Sender: FDA-Public Use
  Company Number: GB-BAYER-201033985GPV

PATIENT
  Age: 31 Year
  Sex: Male

DRUGS (2)
  1. LEPIRUDIN [Suspect]
     Indication: ANTICOAGULANT THERAPY
  2. LEPIRUDIN [Suspect]

REACTIONS (4)
  - CATHETER SITE HAEMATOMA [None]
  - CATHETER SITE HAEMORRHAGE [None]
  - HEPARIN-INDUCED THROMBOCYTOPENIA [None]
  - TRACHEAL HAEMORRHAGE [None]
